FAERS Safety Report 9025216 (Version 2)
Quarter: 2013Q3

REPORT INFORMATION
  Report Type: Spontaneous
  Country: US (occurrence: US)
  Receive Date: 20130122
  Receipt Date: 20130712
  Transmission Date: 20140515
  Serious: Yes (Other)
  Sender: FDA-Public Use
  Company Number: US-ROCHE-788283

PATIENT
  Age: 16 Year
  Sex: Male
  Weight: 120.31 kg

DRUGS (1)
  1. ACCUTANE [Suspect]
     Indication: ACNE
     Dosage: 80MG ALTERNATING WITH 40MG
     Route: 065
     Dates: start: 200104, end: 2002

REACTIONS (8)
  - Colitis ulcerative [Unknown]
  - Inflammatory bowel disease [Unknown]
  - Emotional distress [Unknown]
  - Depression [Unknown]
  - Mental disorder [Unknown]
  - Xerosis [Unknown]
  - Nasal dryness [Unknown]
  - Epistaxis [Unknown]
